FAERS Safety Report 8137853-X (Version None)
Quarter: 2012Q1

REPORT INFORMATION
  Report Type: 
  Country: None (occurrence: None)
  Receive Date: 20120215
  Receipt Date: 20120208
  Transmission Date: 20120608
  Serious: Yes (Death, Hospitalization, Other)
  Sender: FDA-Public Use
  Company Number: BR-BRISTOL-MYERS SQUIBB COMPANY-16391211

PATIENT
  Age: 76 Year
  Sex: Female

DRUGS (2)
  1. ONGLYZA [Suspect]
     Indication: TYPE 2 DIABETES MELLITUS
     Dosage: ONGLYZA TABS 5 MG
     Route: 048
  2. INSULIN [Concomitant]

REACTIONS (2)
  - RENAL IMPAIRMENT [None]
  - LUNG NEOPLASM MALIGNANT [None]
